FAERS Safety Report 24254450 (Version 1)
Quarter: 2024Q3

REPORT INFORMATION
  Report Type: Spontaneous
  Country: US (occurrence: None)
  Receive Date: 20240826
  Receipt Date: 20240826
  Transmission Date: 20241016
  Serious: Yes (Death)
  Sender: Public
  Company Number: None

PATIENT
  Age: 75 Year
  Sex: Female
  Weight: 55.79 kg

DRUGS (9)
  1. PREDNISONE [Suspect]
     Active Substance: PREDNISONE
     Indication: Renal transplant
     Dosage: 20MG DAILY ORAL
     Route: 048
     Dates: start: 201908, end: 20240819
  2. TACROLIMUS [Suspect]
     Active Substance: TACROLIMUS
     Indication: Renal transplant
     Dosage: 0.5MG BID ORAL
     Route: 048
     Dates: start: 20190825, end: 20240819
  3. ELIQUIS [Concomitant]
     Active Substance: APIXABAN
  4. PRAVASTATIN [Concomitant]
     Active Substance: PRAVASTATIN
  5. FAMOTIDINE [Concomitant]
     Active Substance: FAMOTIDINE
  6. VITAMIN D [Concomitant]
     Active Substance: VITAMIN D NOS
  7. CARVEDILOL [Concomitant]
     Active Substance: CARVEDILOL
  8. LEVOTHYROXINE [Concomitant]
     Active Substance: LEVOTHYROXINE\LEVOTHYROXINE SODIUM
  9. MG PLUS PROTEIN [Concomitant]

REACTIONS (1)
  - Neoplasm malignant [None]

NARRATIVE: CASE EVENT DATE: 20240819
